FAERS Safety Report 21858365 (Version 1)
Quarter: 2023Q1

REPORT INFORMATION
  Report Type: Spontaneous
  Country: US (occurrence: None)
  Receive Date: 20230112
  Receipt Date: 20230112
  Transmission Date: 20230417
  Serious: No
  Sender: FDA-Public Use
  Company Number: None

PATIENT
  Sex: Female

DRUGS (2)
  1. OPSUMIT [Suspect]
     Active Substance: MACITENTAN
     Indication: Pulmonary arterial hypertension
     Dosage: FREQUENCY : DAILY;?
     Route: 048
     Dates: start: 201911
  2. TYVASO DPI [Suspect]
     Active Substance: TREPROSTINIL

REACTIONS (7)
  - Oedema peripheral [None]
  - Oedema peripheral [None]
  - Pain in jaw [None]
  - Cough [None]
  - Product dispensing error [None]
  - Product dose omission issue [None]
  - Manufacturing product shipping issue [None]
